FAERS Safety Report 6313575-2 (Version None)
Quarter: 2009Q3

REPORT INFORMATION
  Report Type: 
  Country: None (occurrence: None)
  Receive Date: 20090818
  Receipt Date: 20090814
  Transmission Date: 20100115
  Serious: Yes (Other)
  Sender: FDA-Public Use
  Company Number: KR-BRISTOL-MYERS SQUIBB COMPANY-13644190

PATIENT
  Age: 62 Year
  Sex: Female

DRUGS (3)
  1. TRIAMCINOLONE ACETONIDE [Suspect]
     Indication: MACULAR OEDEMA
     Route: 031
  2. TRIAMCINOLONE ACETONIDE [Suspect]
     Indication: RETINAL NEOVASCULARISATION
     Route: 031
  3. ITRACONAZOLE [Concomitant]
     Route: 057

REACTIONS (4)
  - CORNEAL DISORDER [None]
  - INFECTION [None]
  - PERIORBITAL ABSCESS [None]
  - RETINAL DETACHMENT [None]
